FAERS Safety Report 6907617-0 (Version None)
Quarter: 2010Q3

REPORT INFORMATION
  Report Type: 
  Country: None (occurrence: None)
  Receive Date: 20100714
  Receipt Date: 20090630
  Transmission Date: 20110219
  Serious: No
  Sender: FDA-Public Use
  Company Number: 2009-00249

PATIENT
  Age: 56 Year
  Sex: Female
  Weight: 78.4723 kg

DRUGS (1)
  1. ZICAM NASAL PRODUCTS [Suspect]
     Dosage: Q 4 HRS
     Dates: start: 20090601

REACTIONS (2)
  - AGEUSIA [None]
  - ANOSMIA [None]
